FAERS Safety Report 17594790 (Version 1)
Quarter: 2020Q1

REPORT INFORMATION
  Report Type: Spontaneous
  Country: GB (occurrence: GB)
  Receive Date: 20200328
  Receipt Date: 20200328
  Transmission Date: 20200409
  Serious: Yes (Other)
  Sender: FDA-Public Use
  Company Number: GB-DRREDDYS-GER/UKI/20/0121030

PATIENT
  Age: 22 Year
  Sex: Male

DRUGS (1)
  1. FINASTERIDE. [Suspect]
     Active Substance: FINASTERIDE
     Indication: PRODUCT USED FOR UNKNOWN INDICATION

REACTIONS (7)
  - Collagen disorder [Unknown]
  - Muscle disorder [Unknown]
  - Anxiety [Unknown]
  - Dyspepsia [Unknown]
  - Fat tissue decreased [Unknown]
  - Angina pectoris [Unknown]
  - Insomnia [Unknown]
